FAERS Safety Report 7377576-8 (Version None)
Quarter: 2011Q1

REPORT INFORMATION
  Report Type: 
  Country: None (occurrence: None)
  Receive Date: 20110315
  Receipt Date: 20110228
  Transmission Date: 20110831
  Serious: No
  Sender: FDA-Public Use
  Company Number: AUR-APL-2011-00748

PATIENT
  Age: 85 Year
  Sex: Male

DRUGS (2)
  1. MIRTAZAPINE [Suspect]
     Indication: RESTLESS LEGS SYNDROME
     Dosage: 15MG-DAILY-
  2. ROPINIROLE [Suspect]
     Indication: RESTLESS LEGS SYNDROME
     Dosage: 3MG-DAILY-

REACTIONS (10)
  - POOR QUALITY SLEEP [None]
  - HALLUCINATION, VISUAL [None]
  - CONFUSIONAL STATE [None]
  - DEPRESSION [None]
  - RESTLESS LEGS SYNDROME [None]
  - HALLUCINATION, AUDITORY [None]
  - ASTHENIA [None]
  - DEPRESSED MOOD [None]
  - PNEUMONIA [None]
  - AGGRESSION [None]
